FAERS Safety Report 12584737 (Version 2)
Quarter: 2016Q3

REPORT INFORMATION
  Report Type: Spontaneous
  Country: DE (occurrence: DE)
  Receive Date: 20160722
  Receipt Date: 20160805
  Transmission Date: 20161109
  Serious: Yes (Hospitalization, Other)
  Sender: FDA-Public Use
  Company Number: DE-009507513-1607DEU007867

PATIENT
  Age: 79 Year
  Sex: Female
  Weight: 60 kg

DRUGS (1)
  1. JANUVIA [Suspect]
     Active Substance: SITAGLIPTIN PHOSPHATE
     Indication: TYPE 2 DIABETES MELLITUS
     Dosage: UNK
     Route: 048
     Dates: start: 20160122, end: 20160620

REACTIONS (17)
  - Urinary tract infection [Unknown]
  - Mitral valve incompetence [Unknown]
  - Activated partial thromboplastin time prolonged [Unknown]
  - Restrictive pulmonary disease [Unknown]
  - Pancreatitis chronic [Recovering/Resolving]
  - Blood glucose increased [Unknown]
  - Red cell distribution width increased [Unknown]
  - Prothrombin time shortened [Unknown]
  - Pulmonary arterial hypertension [Unknown]
  - Haematocrit decreased [Unknown]
  - Acute myocardial infarction [Unknown]
  - Tricuspid valve incompetence [Unknown]
  - Haemoglobin decreased [Unknown]
  - Reticulocyte count decreased [Unknown]
  - Coronary artery disease [Unknown]
  - Atrial fibrillation [Unknown]
  - Red blood cell count decreased [Unknown]

NARRATIVE: CASE EVENT DATE: 2016
